FAERS Safety Report 10968634 (Version 1)
Quarter: 2015Q1

REPORT INFORMATION
  Report Type: Spontaneous
  Country: JP (occurrence: JP)
  Receive Date: 20150330
  Receipt Date: 20150330
  Transmission Date: 20150721
  Serious: Yes (Other)
  Sender: FDA-Public Use
  Company Number: JP-KERYX BIOPHARMACEUTICALS, INC.-2014JP000615

PATIENT

DRUGS (16)
  1. LIPITOR [Concomitant]
     Active Substance: ATORVASTATIN CALCIUM
     Indication: HYPERCHOLESTEROLAEMIA
     Dosage: 10 MG, UNK
     Route: 048
  2. WARFARIN                           /00014803/ [Concomitant]
     Active Substance: WARFARIN
     Indication: THROMBOSIS PROPHYLAXIS
     Dosage: 1.5 MG, UNK
     Route: 048
  3. TAKEPRON [Concomitant]
     Active Substance: LANSOPRAZOLE
     Dosage: 15 MG, UNK
     Route: 048
  4. MYSLEE [Concomitant]
     Active Substance: ZOLPIDEM TARTRATE
     Dosage: 10 MG, UNK
     Route: 048
  5. DOPS [Concomitant]
     Active Substance: DROXIDOPA
     Dosage: 100 MG, UNK
     Route: 048
  6. URSO [Concomitant]
     Active Substance: URSODIOL
     Dosage: 100 MG, UNK
     Route: 048
  7. SORBITOL. [Concomitant]
     Active Substance: SORBITOL
     Dosage: 5 G, UNK
     Route: 048
  8. OPALMON [Concomitant]
     Active Substance: LIMAPROST
     Indication: THROMBOSIS
     Dosage: 5 ?G, UNK
     Route: 048
  9. RIONA [Suspect]
     Active Substance: FERRIC CITRATE ANHYDROUS
     Indication: HYPERPHOSPHATAEMIA
     Dosage: 500 MG, TID
     Route: 048
     Dates: start: 20140620, end: 20140918
  10. METLIGINE D [Concomitant]
     Dosage: 2 MG, UNK
     Route: 048
  11. RISUMIC [Concomitant]
     Active Substance: AMEZINIUM METILSULFATE
     Dosage: 10 MG, UNK
     Route: 048
  12. MAINTATE [Concomitant]
     Active Substance: BISOPROLOL FUMARATE
     Dosage: 2.5 MG, UNK
     Route: 048
  13. LAXOBERON [Concomitant]
     Active Substance: SODIUM PICOSULFATE
     Dosage: 10 ML, UNK
     Route: 048
  14. FOSRENOL [Concomitant]
     Active Substance: LANTHANUM CARBONATE
     Indication: HYPERPHOSPHATAEMIA
     Dosage: 500 MG, UNK
     Route: 048
  15. BAYASPIRIN [Concomitant]
     Active Substance: ASPIRIN
     Indication: EMBOLISM
     Dosage: 100 MG, UNK
     Route: 048
  16. HERBAL EXTRACT NOS [Concomitant]
     Active Substance: HERBALS
     Dosage: 2.5 UNK, UNK
     Route: 048

REACTIONS (1)
  - Haemoglobin increased [Recovered/Resolved]

NARRATIVE: CASE EVENT DATE: 20140811
